FAERS Safety Report 6355799-4 (Version None)
Quarter: 2009Q3

REPORT INFORMATION
  Report Type: 
  Country: None (occurrence: None)
  Receive Date: 20090915
  Receipt Date: 20070402
  Transmission Date: 20100115
  Serious: Yes (Other)
  Sender: FDA-Public Use
  Company Number: US-ASTRAZENECA-2006UW25695

PATIENT
  Age: 17120 Day
  Sex: Male
  Weight: 124.7 kg

DRUGS (9)
  1. SEROQUEL [Suspect]
     Indication: SLEEP DISORDER THERAPY
     Route: 048
     Dates: start: 20021115
  2. SEROQUEL [Suspect]
     Route: 048
     Dates: start: 20021216, end: 20060101
  3. SEROQUEL [Suspect]
     Route: 048
  4. DILTIAZEM HCL [Concomitant]
     Route: 048
     Dates: start: 20021115
  5. SPIRONOLACTONE [Concomitant]
     Route: 048
     Dates: start: 20021115
  6. METOCLOPRAMIDE [Concomitant]
     Route: 048
     Dates: start: 20021115
  7. ATENOLOL [Concomitant]
     Route: 048
     Dates: start: 20021115
  8. ATIVAN [Concomitant]
     Dates: start: 20061115
  9. ATIVAN [Concomitant]
     Dates: start: 20061213

REACTIONS (3)
  - DIABETES MELLITUS [None]
  - NEUROPATHY PERIPHERAL [None]
  - TYPE 2 DIABETES MELLITUS [None]
